FAERS Safety Report 8942406 (Version 2)
Quarter: 2013Q1

REPORT INFORMATION
  Report Type: Spontaneous
  Country: ID (occurrence: None)
  Receive Date: 20121121
  Receipt Date: 20121219
  Transmission Date: 20140127
  Serious: Yes (Other)
  Sender: FDA-Public Use
  Company Number: 2012S1001553

PATIENT
  Sex: Male

DRUGS (3)
  1. LIVALO (PITAVASTATIN) TABLETS 2 MG [Suspect]
     Indication: HYPERCHOLESTEROLAEMIA
     Route: 048
  2. ASPIRIN [Concomitant]
  3. MAINTATE [Concomitant]

REACTIONS (3)
  - Visual impairment [None]
  - Activities of daily living impaired [None]
  - Retinal degeneration [None]
